FAERS Safety Report 19442211 (Version 1)
Quarter: 2021Q2

REPORT INFORMATION
  Report Type: Spontaneous
  Country: US (occurrence: US)
  Receive Date: 20210618
  Receipt Date: 20210618
  Transmission Date: 20210717
  Serious: No
  Sender: FDA-Public Use
  Company Number: None

PATIENT
  Age: 51 Year
  Sex: Female
  Weight: 47.7 kg

DRUGS (9)
  1. SYMBICORT [Concomitant]
     Active Substance: BUDESONIDE\FORMOTEROL FUMARATE DIHYDRATE
  2. LEOTHYRONINE [Concomitant]
  3. FASLODEX [Concomitant]
     Active Substance: FULVESTRANT
  4. FENTANYL TRANSDERMAL SYSTEM [Concomitant]
     Active Substance: FENTANYL
  5. LEVOTHYROXINE. [Concomitant]
     Active Substance: LEVOTHYROXINE
  6. ZOLADEX [Concomitant]
     Active Substance: GOSERELIN ACETATE
  7. OXYCODONE [Concomitant]
     Active Substance: OXYCODONE
  8. VERZENIO [Suspect]
     Active Substance: ABEMACICLIB
     Indication: BREAST CANCER METASTATIC
     Dates: start: 20201021, end: 20210520
  9. BECANASE [Concomitant]

REACTIONS (2)
  - Dyspnoea [None]
  - Product packaging difficult to open [None]

NARRATIVE: CASE EVENT DATE: 20210519
